FAERS Safety Report 17436114 (Version 1)
Quarter: 2020Q1

REPORT INFORMATION
  Report Type: Spontaneous
  Country: BR (occurrence: BR)
  Receive Date: 20200219
  Receipt Date: 20200219
  Transmission Date: 20200409
  Serious: Yes (Other)
  Sender: FDA-Public Use
  Company Number: BR-BAXTER-2020BAX001552

PATIENT
  Age: 37 Year
  Sex: Female

DRUGS (15)
  1. FLUDARABINE [Concomitant]
     Active Substance: FLUDARABINE PHOSPHATE
     Dosage: D-6 TO D-3 (REDUCED INTENSITY CONDITIONING)
     Route: 065
  2. FOSFOMYCIN [Concomitant]
     Active Substance: FOSFOMYCIN
     Indication: INFECTION PROPHYLAXIS
     Route: 065
  3. DOXIL [Suspect]
     Active Substance: DOXORUBICIN HYDROCHLORIDE
     Indication: B-CELL LYMPHOMA
     Route: 065
  4. RITUXIMAB. [Concomitant]
     Active Substance: RITUXIMAB
     Dosage: RELAPSE
     Route: 065
     Dates: start: 201704, end: 201707
  5. VORICONAZOLE. [Concomitant]
     Active Substance: VORICONAZOLE
     Indication: BRONCHOPULMONARY ASPERGILLOSIS
     Route: 065
  6. MMF [Suspect]
     Active Substance: MYCOPHENOLATE MOFETIL
     Indication: IMMUNOSUPPRESSANT DRUG THERAPY
     Dosage: STARTING AT D + 5
     Route: 065
  7. DEXAMETHASONE. [Concomitant]
     Active Substance: DEXAMETHASONE
     Indication: B-CELL LYMPHOMA
     Dosage: 4 CYCLES RELAPSE
     Route: 065
     Dates: start: 201704, end: 201707
  8. TACROLIMUS. [Suspect]
     Active Substance: TACROLIMUS
     Indication: IMMUNOSUPPRESSANT DRUG THERAPY
     Dosage: STARTING AT D + 5
     Route: 065
  9. GENUXAL [Suspect]
     Active Substance: CYCLOPHOSPHAMIDE
     Indication: IMMUNOSUPPRESSANT DRUG THERAPY
     Dosage: D + 3 AND D + 4 (PT-CY)
     Route: 065
  10. FLUDARABINE [Concomitant]
     Active Substance: FLUDARABINE PHOSPHATE
     Indication: B-CELL LYMPHOMA
     Dosage: 4 CYCLES OF RELAPSE
     Route: 065
     Dates: start: 201704, end: 201707
  11. MITOXANTRONE [Concomitant]
     Active Substance: MITOXANTRONE HYDROCHLORIDE
     Indication: B-CELL LYMPHOMA
     Dosage: 4 CYCLES RELAPSE
     Route: 065
     Dates: start: 201704, end: 201707
  12. G-CSF [Suspect]
     Active Substance: GRANULOCYTE COLONY-STIMULATING FACTOR NOS
     Indication: IMMUNOSUPPRESSANT DRUG THERAPY
     Dosage: FROM D + 5
     Route: 065
  13. RITUXIMAB. [Concomitant]
     Active Substance: RITUXIMAB
     Dosage: 6 CYCLES OF R-CHOP 21
     Route: 065
     Dates: start: 200601, end: 201606
  14. RITUXIMAB. [Concomitant]
     Active Substance: RITUXIMAB
     Indication: B-CELL LYMPHOMA
     Dosage: 4 CYCLES
     Route: 065
  15. CHLORAMBUCIL [Concomitant]
     Active Substance: CHLORAMBUCIL
     Indication: B-CELL LYMPHOMA
     Dosage: 6 CYCLES
     Route: 065
     Dates: start: 200601, end: 201606

REACTIONS (5)
  - Cytokine release syndrome [Unknown]
  - Febrile neutropenia [Unknown]
  - Nonspecific reaction [Unknown]
  - Acute graft versus host disease [Unknown]
  - Rectal prolapse [Unknown]
